FAERS Safety Report 5020023-1 (Version None)
Quarter: 2006Q2

REPORT INFORMATION
  Report Type: 
  Country: None (occurrence: None)
  Receive Date: 20060601
  Receipt Date: 20060516
  Transmission Date: 20061013
  Serious: Yes (Hospitalization)
  Sender: FDA-Public Use
  Company Number: DSA_28221_2006

PATIENT
  Age: 73 Year
  Sex: Male

DRUGS (8)
  1. ENALAPRIL WITH HCTZ [Suspect]
     Indication: HYPERTENSION
     Dosage: DF Q DAY PO
     Route: 048
     Dates: start: 20050101, end: 20060218
  2. ATENOLOL [Suspect]
     Indication: HYPERTENSION
     Dosage: DF PO
     Route: 048
     Dates: start: 20050101, end: 20060218
  3. TROMBYL [Concomitant]
  4. FOLACIN [Concomitant]
  5. LEVAXIN [Concomitant]
  6. LOPID [Concomitant]
  7. NOVORAPID [Concomitant]
  8. LANTUS [Concomitant]

REACTIONS (4)
  - DIZZINESS [None]
  - HYPOTENSION [None]
  - ORTHOSTATIC HYPOTENSION [None]
  - UPPER LIMB FRACTURE [None]
